FAERS Safety Report 6313826-4 (Version None)
Quarter: 2009Q3

REPORT INFORMATION
  Report Type: 
  Country: None (occurrence: None)
  Receive Date: 20090817
  Receipt Date: 20090817
  Transmission Date: 20100115
  Serious: Yes (Other)
  Sender: FDA-Public Use
  Company Number: None

PATIENT
  Sex: Male
  Weight: 83.4619 kg

DRUGS (1)
  1. GABAPENTIN [Suspect]
     Indication: POST HERPETIC NEURALGIA
     Dosage: 1 TAB 1 TO 3 X DAILY PO
     Route: 048
     Dates: start: 20090812, end: 20090813

REACTIONS (3)
  - APHASIA [None]
  - DIZZINESS [None]
  - MOOD SWINGS [None]
